FAERS Safety Report 12635352 (Version 1)
Quarter: 2016Q3

REPORT INFORMATION
  Report Type: Spontaneous
  Country: US (occurrence: US)
  Receive Date: 20160808
  Receipt Date: 20160808
  Transmission Date: 20161109
  Serious: No
  Sender: FDA-Public Use
  Company Number: US-009507513-1607USA012965

PATIENT
  Age: 23 Year
  Sex: Female
  Weight: 104.31 kg

DRUGS (1)
  1. NEXPLANON [Suspect]
     Active Substance: ETONOGESTREL
     Indication: CONTRACEPTION
     Dosage: ROUTE: LEFT ARM
     Route: 059
     Dates: start: 20130607

REACTIONS (3)
  - Incorrect drug administration duration [Not Recovered/Not Resolved]
  - Product quality issue [Unknown]
  - Device breakage [Not Recovered/Not Resolved]

NARRATIVE: CASE EVENT DATE: 20160608
